FAERS Safety Report 19155429 (Version 1)
Quarter: 2021Q2

REPORT INFORMATION
  Report Type: Spontaneous
  Country: EG (occurrence: EG)
  Receive Date: 20210419
  Receipt Date: 20210419
  Transmission Date: 20210717
  Serious: Yes (Death, Hospitalization, Other)
  Sender: FDA-Public Use
  Company Number: EG-SA-2021SA127649

PATIENT
  Sex: Female
  Weight: 61 kg

DRUGS (1)
  1. ELOXATIN [Suspect]
     Active Substance: OXALIPLATIN
     Indication: COLON CANCER
     Dosage: 200 MG
     Route: 042
     Dates: start: 20201116, end: 20210301

REACTIONS (2)
  - Dyspnoea [Fatal]
  - Hypoxia [Fatal]

NARRATIVE: CASE EVENT DATE: 20210118
